FAERS Safety Report 18683286 (Version 2)
Quarter: 2021Q1

REPORT INFORMATION
  Report Type: Spontaneous
  Country: BR (occurrence: BR)
  Receive Date: 20201230
  Receipt Date: 20210105
  Transmission Date: 20210419
  Serious: Yes (Other)
  Sender: FDA-Public Use
  Company Number: NVSC2020BR345415

PATIENT
  Age: 51 Year
  Sex: Female

DRUGS (1)
  1. IMATINIB MESILATE [Suspect]
     Active Substance: IMATINIB MESYLATE
     Indication: CHRONIC MYELOID LEUKAEMIA
     Dosage: UNK
     Route: 065

REACTIONS (12)
  - Liver disorder [Not Recovered/Not Resolved]
  - Asthenia [Unknown]
  - Malaise [Unknown]
  - Abdominal discomfort [Unknown]
  - Thrombocytopenia [Unknown]
  - Splenomegaly [Unknown]
  - Fatigue [Unknown]
  - Treatment failure [Unknown]
  - Ascites [Unknown]
  - Rash erythematous [Unknown]
  - Decreased appetite [Unknown]
  - Normochromic normocytic anaemia [Unknown]

NARRATIVE: CASE EVENT DATE: 201302
